FAERS Safety Report 5525978-4 (Version None)
Quarter: 2007Q4

REPORT INFORMATION
  Report Type: 
  Country: None (occurrence: None)
  Receive Date: 20071126
  Receipt Date: 20071120
  Transmission Date: 20080405
  Serious: Yes (Hospitalization)
  Sender: FDA-Public Use
  Company Number: FR-ROXANE LABORATORIES, INC-2007-BP-24875RO

PATIENT
  Age: 49 Year
  Sex: Male

DRUGS (7)
  1. PREDNISONE TAB [Suspect]
     Indication: IMMUNOSUPPRESSION
  2. MYCOPHENOLATE MOFETIL [Suspect]
     Indication: IMMUNOSUPPRESSION
  3. TACROLIMUS [Suspect]
     Indication: IMMUNOSUPPRESSION
  4. AMPHOTERICIN B [Concomitant]
     Indication: FUNGAEMIA
  5. 5-FLUOROCYTOSINE [Concomitant]
     Indication: FUNGAEMIA
  6. FLUCONAZOLE [Concomitant]
     Indication: FUNGAEMIA
  7. PREDNISOLONE [Concomitant]

REACTIONS (6)
  - CELLULITIS [None]
  - CRYPTOCOCCOSIS [None]
  - IMMUNE RECONSTITUTION SYNDROME [None]
  - KIDNEY TRANSPLANT REJECTION [None]
  - OPPORTUNISTIC INFECTION [None]
  - SEPSIS [None]
